FAERS Safety Report 18733601 (Version 5)
Quarter: 2021Q2

REPORT INFORMATION
  Report Type: Spontaneous
  Country: US (occurrence: US)
  Receive Date: 20210113
  Receipt Date: 20210608
  Transmission Date: 20210717
  Serious: Yes (Hospitalization, Other)
  Sender: FDA-Public Use
  Company Number: US-JNJFOC-20210106590

PATIENT
  Age: 55 Year
  Sex: Male
  Weight: 30.08 kg

DRUGS (11)
  1. MORPHINE [Concomitant]
     Active Substance: MORPHINE
  2. RAMIPRIL. [Concomitant]
     Active Substance: RAMIPRIL
     Route: 065
  3. KLONOPIN [Concomitant]
     Active Substance: CLONAZEPAM
     Indication: INSOMNIA
     Route: 065
  4. INVEGA SUSTENNA [Suspect]
     Active Substance: PALIPERIDONE PALMITATE
  5. RISPERDAL [Suspect]
     Active Substance: RISPERIDONE
     Indication: PRODUCT USED FOR UNKNOWN INDICATION
     Route: 048
  6. VALPROIC ACID. [Concomitant]
     Active Substance: VALPROIC ACID
     Route: 065
  7. NAVANE [TIOTIXENE] [Concomitant]
     Indication: DEPRESSION
  8. INVEGA SUSTENNA [Suspect]
     Active Substance: PALIPERIDONE PALMITATE
     Indication: PRODUCT USED FOR UNKNOWN INDICATION
     Route: 030
     Dates: start: 20200108, end: 202009
  9. INVEGA SUSTENNA [Suspect]
     Active Substance: PALIPERIDONE PALMITATE
  10. SEROQUEL [Concomitant]
     Active Substance: QUETIAPINE FUMARATE
     Route: 065
  11. PENCILLIN [Concomitant]
     Active Substance: PENICILLIN

REACTIONS (10)
  - Terminal state [Unknown]
  - Hospitalisation [Unknown]
  - Anxiety [Unknown]
  - Suspected COVID-19 [Unknown]
  - Inappropriate schedule of product administration [Unknown]
  - Diabetes mellitus [Unknown]
  - Off label use [Unknown]
  - Memory impairment [Unknown]
  - Adverse drug reaction [Unknown]
  - Emotional disorder [Unknown]

NARRATIVE: CASE EVENT DATE: 202008
